FAERS Safety Report 21114661 (Version 1)
Quarter: 2022Q3

REPORT INFORMATION
  Report Type: Spontaneous
  Country: US (occurrence: US)
  Receive Date: 20220721
  Receipt Date: 20220721
  Transmission Date: 20221026
  Serious: No
  Sender: FDA-Public Use
  Company Number: US-MEDEXUS PHARMA, INC.-2022MED00199

PATIENT
  Age: 59 Year
  Sex: Female

DRUGS (8)
  1. RASUVO [Suspect]
     Active Substance: METHOTREXATE SODIUM
     Indication: Rheumatoid arthritis
     Dosage: 20 MG INJECTED IN THIGH, 1X/WEEK
     Dates: end: 20220410
  2. LORATADINE [Concomitant]
     Active Substance: LORATADINE
  3. CIPROFLOXACIN [Concomitant]
     Active Substance: CIPROFLOXACIN
  4. LEVOCETIRIZINE DIHYDROCHLORIDE [Concomitant]
     Active Substance: LEVOCETIRIZINE DIHYDROCHLORIDE
  5. TIZANIDINE [Concomitant]
     Active Substance: TIZANIDINE
  6. AMITRIPTYLINE [Concomitant]
     Active Substance: AMITRIPTYLINE
  7. CELEBREX [Concomitant]
     Active Substance: CELECOXIB
  8. FOLIC ACID [Concomitant]
     Active Substance: FOLIC ACID

REACTIONS (2)
  - Gait disturbance [Not Recovered/Not Resolved]
  - Device defective [Not Recovered/Not Resolved]

NARRATIVE: CASE EVENT DATE: 20220401
